FAERS Safety Report 7073762-5 (Version None)
Quarter: 2010Q4

REPORT INFORMATION
  Report Type: 
  Country: None (occurrence: None)
  Receive Date: 20101029
  Receipt Date: 20101001
  Transmission Date: 20110411
  Serious: No
  Sender: FDA-Public Use
  Company Number: A0875200A

PATIENT
  Age: 81 Year
  Sex: Male

DRUGS (6)
  1. ADVAIR DISKUS 100/50 [Suspect]
     Dosage: 1PUFF TWICE PER DAY
     Route: 055
     Dates: start: 20100602
  2. GEMFIBROZIL [Concomitant]
  3. FLUTICASONE NASAL SPRAY [Concomitant]
  4. CALCIUM [Concomitant]
  5. CENTRUM [Concomitant]
  6. LUTEIN [Concomitant]

REACTIONS (2)
  - PRODUCT QUALITY ISSUE [None]
  - SPUTUM INCREASED [None]
